FAERS Safety Report 14454523 (Version 1)
Quarter: 2018Q1

REPORT INFORMATION
  Report Type: Spontaneous
  Country: US (occurrence: US)
  Receive Date: 20180128
  Receipt Date: 20180128
  Transmission Date: 20180509
  Serious: Yes (Life-Threatening, Hospitalization, Other)
  Sender: FDA-Public Use
  Company Number: None

PATIENT
  Sex: Female
  Weight: 87.75 kg

DRUGS (9)
  1. COGENTIN [Concomitant]
     Active Substance: BENZTROPINE MESYLATE
  2. HYDROXYCHLOROQUINE SULFATE. [Suspect]
     Active Substance: HYDROXYCHLOROQUINE SULFATE
     Indication: CUTANEOUS LUPUS ERYTHEMATOSUS
     Dates: start: 20090212, end: 20090315
  3. VITRON-C [Concomitant]
     Active Substance: ASCORBIC ACID\IRON
  4. RED YEAST RICE [Concomitant]
     Active Substance: DIETARY SUPPLEMENT
  5. CHONDROITIN [Concomitant]
     Active Substance: CHONDROITIN
  6. IBUPROFEN. [Concomitant]
     Active Substance: IBUPROFEN
  7. HALDOL [Concomitant]
     Active Substance: HALOPERIDOL
  8. CELLCEPT [Concomitant]
     Active Substance: MYCOPHENOLATE MOFETIL\MYCOPHENOLATE MOFETIL HYDROCHLORIDE
  9. GLUCOSAMINE [Concomitant]
     Active Substance: GLUCOSAMINE

REACTIONS (5)
  - Cognitive disorder [None]
  - Product substitution issue [None]
  - General physical health deterioration [None]
  - Acute psychosis [None]
  - Schizoaffective disorder [None]

NARRATIVE: CASE EVENT DATE: 20090312
